FAERS Safety Report 18182570 (Version 1)
Quarter: 2020Q3

REPORT INFORMATION
  Report Type: Spontaneous
  Country: CN (occurrence: CN)
  Receive Date: 20200821
  Receipt Date: 20200821
  Transmission Date: 20201103
  Serious: Yes (Hospitalization, Other)
  Sender: FDA-Public Use
  Company Number: CN-ASTRAZENECA-2020SF05539

PATIENT
  Age: 26872 Day
  Sex: Male

DRUGS (6)
  1. XIN WEI NING [Suspect]
     Active Substance: TIROFIBAN HYDROCHLORIDE
     Indication: ANTIPLATELET THERAPY
     Route: 022
  2. BRILINTA [Suspect]
     Active Substance: TICAGRELOR
     Indication: ANTIPLATELET THERAPY
     Route: 048
     Dates: start: 20200731, end: 20200807
  3. ASPIRIN. [Suspect]
     Active Substance: ASPIRIN
     Indication: ANTIPLATELET THERAPY
     Route: 065
     Dates: start: 20200731, end: 20200807
  4. XIN WEI NING [Suspect]
     Active Substance: TIROFIBAN HYDROCHLORIDE
     Indication: ANTIPLATELET THERAPY
     Route: 065
     Dates: start: 20200731, end: 20200731
  5. XIN WEI NING [Suspect]
     Active Substance: TIROFIBAN HYDROCHLORIDE
     Indication: ANTIPLATELET THERAPY
     Route: 065
     Dates: start: 20200801, end: 20200801
  6. HEPARIN [Concomitant]
     Active Substance: HEPARIN SODIUM

REACTIONS (10)
  - Vascular stent occlusion [Unknown]
  - Haemoptysis [Unknown]
  - Chest pain [Unknown]
  - Upper gastrointestinal haemorrhage [Recovering/Resolving]
  - Vomiting [Unknown]
  - Chest discomfort [Unknown]
  - Hypotension [Unknown]
  - Heart rate decreased [Unknown]
  - Nausea [Unknown]
  - Atrioventricular block complete [Unknown]

NARRATIVE: CASE EVENT DATE: 20200801
